FAERS Safety Report 20688655 (Version 2)
Quarter: 2022Q3

REPORT INFORMATION
  Report Type: Report from Study
  Country: US (occurrence: US)
  Receive Date: 20220408
  Receipt Date: 20220722
  Transmission Date: 20221027
  Serious: Yes (Life-Threatening, Other)
  Sender: FDA-Public Use
  Company Number: US-BRISTOL-MYERS SQUIBB COMPANY-2022-014223

PATIENT
  Age: 74 Year
  Sex: Female
  Weight: 58.06 kg

DRUGS (2)
  1. REVLIMID [Suspect]
     Active Substance: LENALIDOMIDE
     Indication: Non-Hodgkin^s lymphoma
     Dosage: 5 MG ON DAYS 1-21?28 DAY CYCLE, ORAL
     Route: 048
     Dates: start: 2017
  2. REVLIMID [Suspect]
     Active Substance: LENALIDOMIDE
     Indication: Diffuse large B-cell lymphoma
     Route: 048

REACTIONS (5)
  - Muscle spasms [Unknown]
  - Diarrhoea [Unknown]
  - Atrial flutter [Unknown]
  - Heart rate increased [Unknown]
  - Intentional product use issue [Unknown]
